FAERS Safety Report 6984519-5 (Version None)
Quarter: 2010Q3

REPORT INFORMATION
  Report Type: 
  Country: None (occurrence: None)
  Receive Date: 20100915
  Receipt Date: 20100902
  Transmission Date: 20110219
  Serious: Yes (Hospitalization)
  Sender: FDA-Public Use
  Company Number: US-CELGENEUS-163-21880-10090474

PATIENT
  Sex: Female

DRUGS (3)
  1. REVLIMID [Suspect]
     Indication: MULTIPLE MYELOMA
     Route: 048
     Dates: start: 20090210
  2. REVLIMID [Suspect]
     Route: 048
     Dates: start: 20080501
  3. REVLIMID [Suspect]
     Route: 048
     Dates: start: 20080301

REACTIONS (3)
  - DEHYDRATION [None]
  - ELECTROLYTE IMBALANCE [None]
  - URINARY TRACT OBSTRUCTION [None]
